FAERS Safety Report 6398156-7 (Version None)
Quarter: 2009Q4

REPORT INFORMATION
  Report Type: 
  Country: None (occurrence: None)
  Receive Date: 20091013
  Receipt Date: 20091009
  Transmission Date: 20100525
  Serious: Yes (Hospitalization)
  Sender: FDA-Public Use
  Company Number: CH-BAYER-200935226GPV

PATIENT
  Age: 65 Year
  Sex: Female
  Weight: 78 kg

DRUGS (8)
  1. ASPIRIN [Suspect]
     Indication: DRUG USE FOR UNKNOWN INDICATION
     Dosage: TOTAL DAILY DOSE: 100 MG  UNIT DOSE: 100 MG
     Route: 048
     Dates: start: 20090914, end: 20090921
  2. ZEFTERA [Suspect]
     Indication: ENDOCARDITIS
     Dosage: TOTAL DAILY DOSE: 1500 MG
     Route: 041
     Dates: start: 20090903, end: 20090921
  3. SPIRICORT [Concomitant]
     Indication: DRUG RASH WITH EOSINOPHILIA AND SYSTEMIC SYMPTOMS
     Route: 048
     Dates: start: 20090903
  4. MARCUMAR [Concomitant]
     Indication: HEART VALVE REPLACEMENT
     Dosage: DUE TO INR VALUE
     Route: 048
     Dates: start: 20090903
  5. COVERSUM [Concomitant]
     Dosage: TOTAL DAILY DOSE: 4 MG
     Route: 048
     Dates: start: 20090908
  6. BELOC ZOK [Concomitant]
     Dosage: TOTAL DAILY DOSE: 25 MG
     Route: 048
     Dates: start: 20090914
  7. VANCOMYCIN/RIMACTAN/GARAMYCIN [Concomitant]
     Dates: end: 20090815
  8. DAPTOMYCIN [Concomitant]
     Dates: start: 20090817, end: 20090824

REACTIONS (1)
  - AGRANULOCYTOSIS [None]
